FAERS Safety Report 25565915 (Version 4)
Quarter: 2025Q4

REPORT INFORMATION
  Report Type: Spontaneous
  Country: US (occurrence: US)
  Receive Date: 20250716
  Receipt Date: 20251028
  Transmission Date: 20260117
  Serious: Yes (Other)
  Sender: PFIZER
  Company Number: US-PFIZER INC-PV202500085285

PATIENT
  Age: 61 Year
  Sex: Female

DRUGS (1)
  1. IBRANCE [Suspect]
     Active Substance: PALBOCICLIB
     Indication: Breast cancer female
     Dosage: 125 MG

REACTIONS (7)
  - Neutrophil count decreased [Unknown]
  - Pruritus [Unknown]
  - Fatigue [Unknown]
  - Diarrhoea [Unknown]
  - Alopecia [Unknown]
  - Haemoglobin decreased [Unknown]
  - Taste disorder [Unknown]
